FAERS Safety Report 10761393 (Version 1)
Quarter: 2015Q1

REPORT INFORMATION
  Report Type: Spontaneous
  Country: US (occurrence: None)
  Receive Date: 20150128
  Receipt Date: 20150128
  Transmission Date: 20150721
  Serious: Yes (Hospitalization)
  Sender: FDA-Public Use
  Company Number: 1415209

PATIENT
  Age: 70 Year
  Sex: Female

DRUGS (4)
  1. ASPIRIN. [Concomitant]
     Active Substance: ASPIRIN
  2. RITUXAN [Suspect]
     Active Substance: RITUXIMAB
     Indication: HAEMOLYTIC ANAEMIA
     Dates: start: 20130730
  3. DRAMAMINE (DIMENHYDRINATE) [Concomitant]
  4. FOLATE (FOLIC ACID) [Concomitant]

REACTIONS (7)
  - Fatigue [None]
  - Nausea [None]
  - Haemoglobin decreased [None]
  - Pneumonia [None]
  - Asthenia [None]
  - Abdominal discomfort [None]
  - Palpitations [None]

NARRATIVE: CASE EVENT DATE: 20131207
